FAERS Safety Report 10101817 (Version 1)
Quarter: 2014Q2

REPORT INFORMATION
  Report Type: Spontaneous
  Country: US (occurrence: None)
  Receive Date: 20140423
  Receipt Date: 20140423
  Transmission Date: 20141212
  Serious: Yes (Hospitalization)
  Sender: FDA-Public Use
  Company Number: None

PATIENT
  Age: 60 Year
  Sex: Male

DRUGS (3)
  1. SOVALDI [Suspect]
     Indication: DRUG THERAPY
     Route: 048
  2. RIBASPHERE [Concomitant]
  3. PEGASYS [Concomitant]

REACTIONS (2)
  - Liver disorder [None]
  - Ammonia increased [None]
